FAERS Safety Report 9723625 (Version 1)
Quarter: 2013Q4

REPORT INFORMATION
  Report Type: Spontaneous
  Country: CA (occurrence: CA)
  Receive Date: 20131202
  Receipt Date: 20131202
  Transmission Date: 20140711
  Serious: Yes (Disabling)
  Sender: FDA-Public Use
  Company Number: CA-GLAXOSMITHKLINE-A1050511A

PATIENT
  Age: 62 Year
  Sex: Female

DRUGS (1)
  1. ADVAIR [Suspect]
     Indication: CHRONIC OBSTRUCTIVE PULMONARY DISEASE
     Dosage: 1PUFF TWICE PER DAY
     Route: 065
     Dates: start: 20131007, end: 20131014

REACTIONS (2)
  - Myalgia [Recovered/Resolved]
  - Condition aggravated [Recovered/Resolved]
